FAERS Safety Report 9406382 (Version 1)
Quarter: 2013Q3

REPORT INFORMATION
  Report Type: Spontaneous
  Country: VE (occurrence: VE)
  Receive Date: 20130718
  Receipt Date: 20130718
  Transmission Date: 20140515
  Serious: Yes (Hospitalization)
  Sender: FDA-Public Use
  Company Number: VE-ROCHE-1249361

PATIENT
  Age: 57 Year
  Sex: Female

DRUGS (4)
  1. XOLAIR [Suspect]
     Indication: ASTHMA
     Route: 058
     Dates: start: 20100521, end: 20100521
  2. XOLAIR [Suspect]
     Route: 058
  3. CALCORT [Concomitant]
  4. VANNAIR [Concomitant]

REACTIONS (2)
  - Convulsion [Unknown]
  - Neurological symptom [Recovered/Resolved]
